FAERS Safety Report 7957934 (Version 3)
Quarter: 2012Q4

REPORT INFORMATION
  Report Type: Spontaneous
  Country: US (occurrence: None)
  Receive Date: 20110505
  Receipt Date: 20120426
  Transmission Date: 20130627
  Serious: Yes (Hospitalization)
  Sender: FDA-Public Use
  Company Number: 2011GW000266

PATIENT
  Age: 65 Year
  Sex: Male
  Weight: 79.38 kg

DRUGS (12)
  1. ZYCLARA [Suspect]
     Indication: ACTINIC KERATOSIS
     Dosage: 3.75 PCT;QD;TOP
     Route: 061
     Dates: start: 20110328, end: 20110414
  2. ASPIRIN [Concomitant]
  3. HYDROCHLOROTHIAZIDE W/LISINOPRIL [Concomitant]
  4. METFORMIN HYDROCHLORIDE [Concomitant]
  5. METHYLPREDNISOLONE [Concomitant]
  6. SINGULAIR [Concomitant]
  7. MULTIVITAMINS [Concomitant]
  8. PROTONIX [Concomitant]
  9. PRAVASTATIN [Concomitant]
  10. RAPAFLO [Concomitant]
  11. TRAMADOL HYDROCHLORIDE [Concomitant]
  12. INSULIN [Concomitant]

REACTIONS (32)
  - Erythema [None]
  - Headache [None]
  - Malaise [None]
  - Infection [None]
  - Chest pain [None]
  - Nausea [None]
  - Dyspnoea [None]
  - Asthenia [None]
  - Hypersensitivity [None]
  - Anxiety [None]
  - Panic attack [None]
  - Cellulitis [None]
  - Staphylococcal infection [None]
  - Blister [None]
  - Skin disorder [None]
  - Pyrexia [None]
  - Chills [None]
  - Rash pustular [None]
  - Dyspepsia [None]
  - Chest discomfort [None]
  - Abdominal pain [None]
  - Fatigue [None]
  - Decreased appetite [None]
  - Hyperhidrosis [None]
  - Dyspnoea exertional [None]
  - Dizziness [None]
  - Vomiting [None]
  - Electrocardiogram ST segment abnormal [None]
  - Diastolic dysfunction [None]
  - Hypokalaemia [None]
  - Dermatitis contact [None]
  - Skin disorder [None]
